FAERS Safety Report 8182687 (Version 2)
Quarter: 2013Q1

REPORT INFORMATION
  Report Type: Spontaneous
  Country: CA (occurrence: CA)
  Receive Date: 20111017
  Receipt Date: 20130225
  Transmission Date: 20140127
  Serious: Yes (Other)
  Sender: FDA-Public Use
  Company Number: CA-JNJFOC-20111005642

PATIENT
  Sex: Female

DRUGS (5)
  1. REMICADE [Suspect]
     Indication: SPONDYLITIS
     Route: 042
     Dates: start: 200103, end: 201010
  2. REMICADE [Suspect]
     Indication: CROHN^S DISEASE
     Route: 042
     Dates: start: 200103, end: 201010
  3. REMICADE [Suspect]
     Indication: ARTHRITIS
     Route: 042
     Dates: start: 200103, end: 201010
  4. REMICADE [Suspect]
     Indication: RHEUMATOID ARTHRITIS
     Route: 042
     Dates: start: 200103, end: 201010
  5. NAPROSYN [Concomitant]
     Route: 065

REACTIONS (4)
  - Lupus-like syndrome [Recovering/Resolving]
  - Hypersensitivity [Recovering/Resolving]
  - Dizziness [Unknown]
  - Rhinalgia [Unknown]
